FAERS Safety Report 7441469-8 (Version None)
Quarter: 2011Q2

REPORT INFORMATION
  Report Type: 
  Country: None (occurrence: None)
  Receive Date: 20110418
  Receipt Date: 20110401
  Transmission Date: 20111010
  Serious: Yes (Other)
  Sender: FDA-Public Use
  Company Number: 2011IP000059

PATIENT
  Age: 57 Year
  Sex: Male

DRUGS (1)
  1. VITRASE [Suspect]
     Indication: DRUG THERAPY
     Dates: start: 20110316, end: 20110316

REACTIONS (4)
  - SKIN GRAFT [None]
  - POST PROCEDURAL COMPLICATION [None]
  - WOUND [None]
  - SKIN DISORDER [None]
